FAERS Safety Report 4317054-3 (Version None)
Quarter: 2004Q1

REPORT INFORMATION
  Report Type: 
  Country: None (occurrence: None)
  Receive Date: 20040312
  Receipt Date: 20040304
  Transmission Date: 20041129
  Serious: Yes (Other)
  Sender: FDA-Public Use
  Company Number: 200410896BCC

PATIENT
  Age: 65 Year
  Sex: Male
  Weight: 63.5036 kg

DRUGS (4)
  1. ALKA-SELTZER PLUS COLD [Suspect]
     Indication: NASOPHARYNGITIS
     Dosage: ORAL
     Route: 048
  2. HIGH BLOOD PRESSURE MEDICATION [Concomitant]
  3. COUMADIN [Concomitant]
  4. DIURETIC [Concomitant]

REACTIONS (1)
  - TRANSIENT ISCHAEMIC ATTACK [None]
